FAERS Safety Report 5498070-5 (Version None)
Quarter: 2007Q4

REPORT INFORMATION
  Report Type: 
  Country: None (occurrence: None)
  Receive Date: 20071025
  Receipt Date: 20071016
  Transmission Date: 20080405
  Serious: Yes (Hospitalization, Other)
  Sender: FDA-Public Use
  Company Number: US-PFIZER INC-2007087157

PATIENT
  Age: 45 Year
  Sex: Male

DRUGS (1)
  1. GEODON [Suspect]

REACTIONS (1)
  - KETOACIDOSIS [None]
